FAERS Safety Report 9372076 (Version 1)
Quarter: 2013Q2

REPORT INFORMATION
  Report Type: Spontaneous
  Country: US (occurrence: US)
  Receive Date: 20130627
  Receipt Date: 20130627
  Transmission Date: 20140414
  Serious: Yes (Hospitalization)
  Sender: FDA-Public Use
  Company Number: US-BAYER-2013-078708

PATIENT
  Age: 29 Year
  Sex: Female

DRUGS (12)
  1. YASMIN [Suspect]
     Indication: PREMENSTRUAL DYSPHORIC DISORDER
  2. YASMIN [Suspect]
     Indication: MENSTRUATION IRREGULAR
  3. YAZ [Suspect]
     Indication: PREMENSTRUAL DYSPHORIC DISORDER
  4. YAZ [Suspect]
     Indication: MENSTRUATION IRREGULAR
  5. OCELLA [Suspect]
  6. CYCLOBENZAPRINE [Concomitant]
  7. CETIRIZIN [Concomitant]
  8. PERCOCET [Concomitant]
  9. DIAZEPAM [Concomitant]
  10. VANCOMYCIN [Concomitant]
  11. CEFTAZIDIME [Concomitant]
  12. METOPROLOL [Concomitant]

REACTIONS (2)
  - Deep vein thrombosis [None]
  - Pulmonary embolism [None]
